FAERS Safety Report 21121258 (Version 1)
Quarter: 2022Q3

REPORT INFORMATION
  Report Type: Spontaneous
  Country: US (occurrence: None)
  Receive Date: 20220722
  Receipt Date: 20220722
  Transmission Date: 20221027
  Serious: No
  Sender: FDA-Public Use
  Company Number: None

PATIENT
  Age: 73 Year
  Sex: Female

DRUGS (1)
  1. ADBRY [Suspect]
     Active Substance: TRALOKINUMAB-LDRM
     Indication: Dermatitis atopic
     Dosage: INJECT 60MG 4Y   SUBCUTANEOUSLY ON DAY 1, THEN 300MG (2 SYRINGES) EVERY 2 WEEKS STARTING ON DAY 14
     Route: 058
     Dates: start: 202205

REACTIONS (1)
  - COVID-19 [None]
